FAERS Safety Report 6720921-4 (Version None)
Quarter: 2010Q2

REPORT INFORMATION
  Report Type: 
  Country: None (occurrence: None)
  Receive Date: 20100512
  Receipt Date: 20100503
  Transmission Date: 20101027
  Serious: Yes (Hospitalization)
  Sender: FDA-Public Use
  Company Number: CH-JNJFOC-20100500074

PATIENT
  Age: 26 Year
  Sex: Male
  Weight: 72.2 kg

DRUGS (6)
  1. RISPERDAL [Suspect]
     Indication: DRUG USE FOR UNKNOWN INDICATION
     Route: 065
  2. RISPERDAL [Suspect]
     Route: 065
  3. RISPERDAL [Suspect]
     Route: 065
  4. INVEGA [Suspect]
     Indication: PSYCHOTIC DISORDER
     Route: 065
  5. INVEGA [Suspect]
     Route: 065
  6. SEROQUEL [Suspect]
     Indication: DRUG USE FOR UNKNOWN INDICATION
     Route: 065

REACTIONS (2)
  - PSYCHOTIC DISORDER [None]
  - WEIGHT INCREASED [None]
